FAERS Safety Report 11583514 (Version 3)
Quarter: 2015Q4

REPORT INFORMATION
  Report Type: Report from Study
  Country: US (occurrence: US)
  Receive Date: 20151001
  Receipt Date: 20151126
  Transmission Date: 20160304
  Serious: No
  Sender: FDA-Public Use
  Company Number: US-AMGEN-USASL2015098987

PATIENT
  Age: 59 Year
  Sex: Female

DRUGS (1)
  1. ENBREL [Suspect]
     Active Substance: ETANERCEPT
     Indication: RHEUMATOID ARTHRITIS
     Dosage: 50 MG, QWK
     Route: 065
     Dates: start: 20150831, end: 20151018

REACTIONS (20)
  - Sleep disorder [Unknown]
  - Dizziness [Unknown]
  - Feeling hot [Unknown]
  - Injection site bruising [Recovered/Resolved]
  - Wrong technique in product usage process [Unknown]
  - Paraesthesia [Unknown]
  - Underdose [Unknown]
  - Hypoaesthesia [Unknown]
  - Pollakiuria [Unknown]
  - Palpitations [Unknown]
  - Injection site discolouration [Unknown]
  - Pain in extremity [Unknown]
  - Drug dose omission [Unknown]
  - Blood pressure increased [Unknown]
  - Injection site extravasation [Unknown]
  - Headache [Unknown]
  - Pain [Unknown]
  - Injection site pain [Unknown]
  - Feeling abnormal [Unknown]
  - Injection site erythema [Unknown]

NARRATIVE: CASE EVENT DATE: 2015
